FAERS Safety Report 9276014 (Version 2)
Quarter: 2013Q2

REPORT INFORMATION
  Report Type: Spontaneous
  Country: US (occurrence: US)
  Receive Date: 20130507
  Receipt Date: 20130625
  Transmission Date: 20140414
  Serious: No
  Sender: FDA-Public Use
  Company Number: US-PFIZER INC-2013139030

PATIENT
  Age: 61 Year
  Sex: Female
  Weight: 68.03 kg

DRUGS (2)
  1. ADVIL [Suspect]
     Indication: HEADACHE
     Dosage: ONE OR TWO TABLETS OF 200MG TABLET AS NEEDED
     Route: 048
  2. ADVIL [Suspect]
     Indication: BACK PAIN

REACTIONS (4)
  - Poor quality drug administered [Unknown]
  - Dysphagia [Unknown]
  - Product coating issue [Unknown]
  - Tablet physical issue [Unknown]
